FAERS Safety Report 8054060-X (Version None)
Quarter: 2012Q1

REPORT INFORMATION
  Report Type: 
  Country: None (occurrence: None)
  Receive Date: 20120118
  Receipt Date: 20120112
  Transmission Date: 20120608
  Serious: Yes (Hospitalization)
  Sender: FDA-Public Use
  Company Number: US-ASTRAZENECA-2010SE18633

PATIENT
  Age: 58 Year
  Sex: Female

DRUGS (3)
  1. SYMBICORT [Suspect]
     Route: 055
  2. CRESTOR [Suspect]
     Route: 048
  3. SYMBICORT [Suspect]
     Route: 055

REACTIONS (5)
  - DRUG DOSE OMISSION [None]
  - MALAISE [None]
  - CHEST PAIN [None]
  - OXYGEN SATURATION DECREASED [None]
  - PNEUMONIA BACTERIAL [None]
